FAERS Safety Report 8320138-6 (Version None)
Quarter: 2012Q2

REPORT INFORMATION
  Report Type: 
  Country: None (occurrence: None)
  Receive Date: 20120430
  Receipt Date: 20120423
  Transmission Date: 20120825
  Serious: Yes (Hospitalization, Other)
  Sender: FDA-Public Use
  Company Number: FR-BIOGENIDEC-2010BI019683

PATIENT
  Age: 28 Year
  Sex: Female

DRUGS (3)
  1. TYSABRI [Suspect]
     Indication: MULTIPLE SCLEROSIS
     Route: 042
     Dates: start: 20080129, end: 20100510
  2. KEPPRA [Concomitant]
  3. GESTODENE AND ETHINYL ESTRADIOL [Concomitant]
     Indication: ORAL CONTRACEPTION

REACTIONS (1)
  - ATYPICAL MYCOBACTERIAL INFECTION [None]
